FAERS Safety Report 8169692-8 (Version None)
Quarter: 2012Q1

REPORT INFORMATION
  Report Type: 
  Country: None (occurrence: None)
  Receive Date: 20120228
  Receipt Date: 20120224
  Transmission Date: 20120608
  Serious: No
  Sender: FDA-Public Use
  Company Number: US-PFIZER INC-2012049955

PATIENT
  Sex: Male
  Weight: 102 kg

DRUGS (2)
  1. CELEBREX [Suspect]
     Indication: ARTHRITIS
     Dosage: 200 MG,DAILY
     Dates: start: 20120217
  2. PRILOSEC [Concomitant]
     Indication: DYSPEPSIA
     Dosage: UNK, DAILY

REACTIONS (1)
  - DRUG INEFFECTIVE [None]
